FAERS Safety Report 5831165-2 (Version None)
Quarter: 2008Q3

REPORT INFORMATION
  Report Type: 
  Country: None (occurrence: None)
  Receive Date: 20080801
  Receipt Date: 20080507
  Transmission Date: 20090109
  Serious: No
  Sender: FDA-Public Use
  Company Number: US-BRISTOL-MYERS SQUIBB COMPANY-14182075

PATIENT
  Age: 64 Year
  Sex: Male
  Weight: 84 kg

DRUGS (5)
  1. COUMADIN [Suspect]
     Indication: CARDIAC VALVE DISEASE
     Dates: start: 19870101
  2. ABILIFY [Concomitant]
  3. LITHIUM [Concomitant]
  4. LISINOPRIL [Concomitant]
  5. ZYRTEC [Concomitant]

REACTIONS (1)
  - INTERNATIONAL NORMALISED RATIO FLUCTUATION [None]
